FAERS Safety Report 8251165-5 (Version None)
Quarter: 2012Q2

REPORT INFORMATION
  Report Type: 
  Country: None (occurrence: None)
  Receive Date: 20120402
  Receipt Date: 20120327
  Transmission Date: 20120825
  Serious: Yes (Other)
  Sender: FDA-Public Use
  Company Number: CH-MERCK-1203USA03669

PATIENT
  Age: 70 Year
  Sex: Male
  Weight: 70 kg

DRUGS (2)
  1. MARCUMAR [Suspect]
     Indication: PULMONARY EMBOLISM
     Route: 048
  2. COSOPT [Suspect]
     Route: 047
     Dates: start: 20111201

REACTIONS (1)
  - INTERNATIONAL NORMALISED RATIO INCREASED [None]
